FAERS Safety Report 9133568 (Version 1)
Quarter: 2013Q1

REPORT INFORMATION
  Report Type: Spontaneous
  Country: US (occurrence: US)
  Receive Date: 20130124
  Receipt Date: 20130124
  Transmission Date: 20140127
  Serious: Yes (Hospitalization, Other)
  Sender: FDA-Public Use
  Company Number: US-BRACCO-007231

PATIENT
  Age: 32 Year
  Sex: Female
  Weight: 68 kg

DRUGS (4)
  1. MULTIHANCE [Suspect]
     Indication: NUCLEAR MAGNETIC RESONANCE IMAGING BREAST
     Dosage: EXPIRATION DATE FOR S1P261A IS 31-MAY-2014
     Route: 042
     Dates: start: 20111109, end: 20111109
  2. MULTIHANCE [Suspect]
     Indication: FIBROCYSTIC BREAST DISEASE
     Dosage: EXPIRATION DATE FOR S1P261A IS 31-MAY-2014
     Route: 042
     Dates: start: 20111109, end: 20111109
  3. SEASONIQUE [Concomitant]
  4. LUSTRA [Concomitant]
     Route: 061

REACTIONS (5)
  - Off label use [Recovered/Resolved]
  - Anaphylactic reaction [Recovered/Resolved]
  - Back pain [Recovered/Resolved]
  - Burning sensation [Recovered/Resolved]
  - Hypoaesthesia [Recovered/Resolved]
